FAERS Safety Report 9988386 (Version 2)
Quarter: 2014Q1

REPORT INFORMATION
  Report Type: Spontaneous
  Country: US (occurrence: US)
  Receive Date: 20140310
  Receipt Date: 20140324
  Transmission Date: 20141002
  Serious: Yes (Other)
  Sender: FDA-Public Use
  Company Number: US-BIOGENIDEC-2014BI020354

PATIENT
  Age: 45 Year
  Sex: Female
  Weight: 96 kg

DRUGS (11)
  1. AVONEX [Suspect]
     Indication: MULTIPLE SCLEROSIS
     Route: 030
  2. AVONEX [Suspect]
     Indication: MULTIPLE SCLEROSIS
     Route: 030
     Dates: start: 20020202, end: 20050202
  3. AVONEX [Suspect]
     Indication: MULTIPLE SCLEROSIS
     Route: 030
     Dates: start: 20120628, end: 201303
  4. CODEINE PHOSPHATE [Concomitant]
     Route: 048
  5. PROMETHAZINE HCL [Concomitant]
     Route: 048
  6. LEXAPRO [Concomitant]
     Route: 048
  7. LOSARTAN [Concomitant]
     Route: 048
  8. HYDROCHLOROTHIAZIDE [Concomitant]
     Route: 048
  9. NASONEX [Concomitant]
     Route: 045
  10. NORVASC [Concomitant]
     Route: 048
  11. SYMBICORT [Concomitant]
     Route: 055

REACTIONS (9)
  - Obesity [Unknown]
  - Oedema peripheral [Unknown]
  - Hypertension [Unknown]
  - Hyperlipidaemia [Unknown]
  - Cough [Unknown]
  - Migraine [Unknown]
  - Status epilepticus [Recovered/Resolved]
  - Psychogenic seizure [Recovered/Resolved]
  - Complex partial seizures [Recovered/Resolved]
